FAERS Safety Report 7944541-9 (Version None)
Quarter: 2011Q4

REPORT INFORMATION
  Report Type: 
  Country: None (occurrence: None)
  Receive Date: 20111122
  Receipt Date: 20110722
  Transmission Date: 20120403
  Serious: Yes (Hospitalization)
  Sender: FDA-Public Use
  Company Number: PHHY2011US69697

PATIENT
  Age: 26 Year
  Sex: Female
  Weight: 69 kg

DRUGS (33)
  1. CARBIDOPA + LEVODOPA [Concomitant]
  2. CIPROFLOXACIN [Concomitant]
  3. TRANEXAMIC ACID [Concomitant]
  4. CELECOXIB [Concomitant]
  5. HYDROCORTISONE [Concomitant]
  6. AMOXICILLIN [Concomitant]
  7. HUMATE-P (FACTOR VIII (ANTIHAEMOPHILIC FACTOR) [Concomitant]
  8. LEVOTHYROXINE SODIUM [Concomitant]
  9. TAVOR (FLUCONAZOLE) [Concomitant]
  10. INDOMETHACIN [Concomitant]
  11. PEMETREXED [Concomitant]
  12. DESMOPRESSIN ACETATE [Concomitant]
  13. NAPROXEN [Concomitant]
  14. MITOXANTRONE [Concomitant]
  15. KETOCONAZOLE [Concomitant]
  16. NATALIZUMAB [Concomitant]
  17. BACLOFEN [Concomitant]
  18. DEXAMETHASONE [Concomitant]
  19. INTERFERON BETA-1A [Concomitant]
  20. PAROXETINE HCL [Concomitant]
  21. ROTIGOTINE [Concomitant]
  22. DALFAMPRIDINE [Concomitant]
  23. GEMCITABINE [Concomitant]
  24. GLATIRAMER ACETATE [Concomitant]
  25. GILENYA [Suspect]
  26. CISPLATIN [Concomitant]
  27. CEFTRIAXONE [Concomitant]
  28. LYRICA [Concomitant]
  29. IBUPROFEN [Concomitant]
  30. DIAZEPAM [Concomitant]
  31. CYMBALTA [Concomitant]
  32. CLONAZEPAM [Concomitant]
  33. DICLOFENAC SODIUM [Concomitant]

REACTIONS (1)
  - BACK PAIN [None]
